FAERS Safety Report 6667263-3 (Version None)
Quarter: 2010Q2

REPORT INFORMATION
  Report Type: 
  Country: None (occurrence: None)
  Receive Date: 20100405
  Receipt Date: 20100331
  Transmission Date: 20101027
  Serious: Yes (Other)
  Sender: FDA-Public Use
  Company Number: IT-ROXANE LABORATORIES, INC.-2010-RO-00366RO

PATIENT
  Age: 30 Year
  Sex: Female

DRUGS (11)
  1. METHOTREXATE [Suspect]
     Indication: RHEUMATOID ARTHRITIS
  2. METHOTREXATE [Suspect]
     Dates: start: 20050101
  3. METHOTREXATE [Suspect]
     Dates: start: 20060101, end: 20070401
  4. HYDROXYCHLOROQUINE SULFATE [Suspect]
     Indication: RHEUMATOID ARTHRITIS
     Dosage: 200 MG
  5. PREDNISOLONE [Suspect]
     Indication: RHEUMATOID ARTHRITIS
     Dosage: 5 MG
     Dates: start: 20050101, end: 20050401
  6. PREDNISOLONE [Suspect]
     Indication: PULMONARY SARCOIDOSIS
     Dosage: 32 MG
  7. PREDNISOLONE [Suspect]
     Dosage: 8 MG
  8. PREDNISOLONE [Suspect]
     Dosage: 4 MG
  9. ADALIMUMAB [Suspect]
     Indication: RHEUMATOID ARTHRITIS
     Dates: start: 20050101, end: 20070401
  10. CLARITHROMYCIN [Concomitant]
     Indication: PULMONARY SARCOIDOSIS
  11. CEFTRIAXONE [Concomitant]
     Indication: PULMONARY SARCOIDOSIS
     Route: 042

REACTIONS (2)
  - DRUG INEFFECTIVE [None]
  - PULMONARY SARCOIDOSIS [None]
